FAERS Safety Report 7131569-4 (Version None)
Quarter: 2010Q4

REPORT INFORMATION
  Report Type: 
  Country: None (occurrence: None)
  Receive Date: 20101201
  Receipt Date: 20101119
  Transmission Date: 20110411
  Serious: Yes (Hospitalization)
  Sender: FDA-Public Use
  Company Number: US-ELI_LILLY_AND_COMPANY-US201006001093

PATIENT
  Sex: Female
  Weight: 71.3 kg

DRUGS (11)
  1. GEMCITABINE HCL [Suspect]
     Indication: T-CELL LYMPHOMA
     Dosage: 600 MG/M2, QOW
     Route: 042
     Dates: start: 20090928
  2. OTHER PHARMA COMPANY INV DRUG [Suspect]
     Indication: T-CELL LYMPHOMA
     Dosage: 15 MG/M2, QOW
     Route: 042
     Dates: start: 20090928
  3. FOLIC ACID [Concomitant]
  4. VITAMIN B-12 [Concomitant]
  5. CANDESARTAN [Concomitant]
  6. CALCIUM W/VITAMIN D NOS [Concomitant]
  7. PROPOXYPHENE HYDROCHLORIDE [Concomitant]
  8. CALCIPOTRIENE [Concomitant]
  9. EUCERIN CREME [Concomitant]
  10. METAMUCIL-2 [Concomitant]
  11. PANTOPRAZOLE [Concomitant]

REACTIONS (4)
  - DYSPNOEA [None]
  - MUCOSAL INFLAMMATION [None]
  - NON-CARDIAC CHEST PAIN [None]
  - PYREXIA [None]
